FAERS Safety Report 23849805 (Version 1)
Quarter: 2024Q2

REPORT INFORMATION
  Report Type: Spontaneous
  Country: US (occurrence: None)
  Receive Date: 20240512
  Receipt Date: 20240512
  Transmission Date: 20240716
  Serious: No
  Sender: FDA-Public Use
  Company Number: None

PATIENT
  Age: 52 Year
  Sex: Female
  Weight: 92.25 kg

DRUGS (1)
  1. MOUNJARO [Suspect]
     Active Substance: TIRZEPATIDE
     Indication: Type 2 diabetes mellitus
     Dates: start: 20240511

REACTIONS (8)
  - Neck pain [None]
  - Chest pain [None]
  - Back pain [None]
  - Pain in extremity [None]
  - Pain [None]
  - Influenza like illness [None]
  - Pain of skin [None]
  - Sensitive skin [None]

NARRATIVE: CASE EVENT DATE: 20240512
